FAERS Safety Report 8967999 (Version 1)
Quarter: 2012Q4

REPORT INFORMATION
  Report Type: Report from Study
  Country: US (occurrence: US)
  Receive Date: 20121217
  Receipt Date: 20121217
  Transmission Date: 20130627
  Serious: Yes (Hospitalization)
  Sender: FDA-Public Use
  Company Number: US-PFIZER INC-2012313505

PATIENT
  Age: 69 Year
  Sex: Female
  Weight: 62 kg

DRUGS (10)
  1. TORISEL [Suspect]
     Indication: RENAL CARCINOMA
     Dosage: 25 mg, UNK
     Route: 042
     Dates: start: 20101020
  2. BEVACIZUMAB [Suspect]
     Indication: RENAL CARCINOMA
     Dosage: 1220 mg, Cycle: 1
     Route: 042
     Dates: start: 20101001, end: 20101015
  3. CELEXA [Concomitant]
     Indication: DEPRESSION
     Dosage: 20 mg (20 mg,1 in 1 D)
     Dates: start: 20100924
  4. GLUCOPHAGE [Concomitant]
     Indication: DIABETES
     Dosage: 500 mg (500 mg,1 in 1 D)
     Dates: start: 2009
  5. ZESTORETIC [Concomitant]
     Indication: HYPERTENSION
     Dosage: 25-30 MG (1 in 1 D)
     Dates: start: 2000
  6. VERAPAMIL [Concomitant]
     Indication: HYPERTENSION
     Dosage: 240 mg, UNK
     Dates: start: 2000
  7. ZOCOR [Concomitant]
     Indication: CHOLESTEROL
     Dosage: 20 mg, UNK
     Dates: start: 2000
  8. PHENERGAN [Concomitant]
     Indication: NAUSEA
     Dosage: 25 mg, 4x/day (every6 hours)
     Dates: start: 20101001
  9. ZOFRAN [Concomitant]
     Indication: NAUSEA
     Dosage: 8 mg, 3x/day (every 8 hours)
     Dates: start: 20101001
  10. SANCUSO [Concomitant]
     Indication: NAUSEA
     Dosage: 3.1 mg, UNK
     Dates: start: 20101022

REACTIONS (1)
  - Dehydration [Recovered/Resolved]
